FAERS Safety Report 20853644 (Version 1)
Quarter: 2022Q2

REPORT INFORMATION
  Report Type: Spontaneous
  Country: JP (occurrence: JP)
  Receive Date: 20220520
  Receipt Date: 20220520
  Transmission Date: 20220721
  Serious: Yes (Hospitalization, Other)
  Sender: FDA-Public Use
  Company Number: JP-SUN PHARMACEUTICAL INDUSTRIES LTD-2022R1-337100

PATIENT
  Age: 44 Year
  Sex: Male

DRUGS (3)
  1. CARBOPLATIN [Suspect]
     Active Substance: CARBOPLATIN
     Indication: Chemotherapy
     Dosage: AREA UNDER THE CURVE 5/ EVERY THREE WEEKS
     Route: 065
  2. PACLITAXEL [Suspect]
     Active Substance: PACLITAXEL
     Indication: Chemotherapy
     Dosage: 200 MILLIGRAM PER CUBIC METRE/ EVERY THREE WEEKS
     Route: 065
  3. PEMBROLIZUMAB [Suspect]
     Active Substance: PEMBROLIZUMAB
     Indication: Chemotherapy
     Dosage: 200 MILLIGRAM/BODY
     Route: 065

REACTIONS (9)
  - COVID-19 pneumonia [Recovering/Resolving]
  - Therapy partial responder [Unknown]
  - Febrile neutropenia [Recovering/Resolving]
  - Hypoxia [Recovering/Resolving]
  - Thrombocytopenia [Recovering/Resolving]
  - Circulatory collapse [Recovering/Resolving]
  - Respiratory failure [Recovering/Resolving]
  - Renal impairment [Recovering/Resolving]
  - Hepatic function abnormal [Recovering/Resolving]
